FAERS Safety Report 25359195 (Version 4)
Quarter: 2025Q2

REPORT INFORMATION
  Report Type: Spontaneous
  Country: US (occurrence: US)
  Receive Date: 20250526
  Receipt Date: 20250626
  Transmission Date: 20250716
  Serious: Yes (Other)
  Sender: SANDOZ
  Company Number: US-SANDOZ-SDZ2025US034883

PATIENT
  Sex: Female

DRUGS (5)
  1. AZITHROMYCIN [Suspect]
     Active Substance: AZITHROMYCIN
     Indication: Mycobacterium avium complex infection
     Dosage: 500 MG, QD
     Route: 048
     Dates: start: 202310
  2. ETHAMBUTOL [Suspect]
     Active Substance: ETHAMBUTOL HYDROCHLORIDE
     Indication: Mycobacterium avium complex infection
     Dosage: 1600 MG, Q3W
     Route: 065
     Dates: start: 20240215, end: 202410
  3. RIFABUTIN [Suspect]
     Active Substance: RIFABUTIN
     Indication: Mycobacterium avium complex infection
     Dosage: 300 MG, Q3W
     Route: 065
     Dates: start: 20240312
  4. RIFAMPIN [Suspect]
     Active Substance: RIFAMPIN
     Indication: Mycobacterium avium complex infection
     Dosage: 600 MG, QD
     Route: 065
     Dates: start: 20231206, end: 20231219
  5. RIFAMPIN [Suspect]
     Active Substance: RIFAMPIN
     Dosage: 600 MG, Q3W
     Route: 065
     Dates: start: 20240103, end: 20240215

REACTIONS (7)
  - Chronic respiratory failure [Unknown]
  - Toxic optic neuropathy [Unknown]
  - Pulmonary cavitation [Unknown]
  - Mycobacterium avium complex infection [Unknown]
  - Emphysema [Unknown]
  - Chronic obstructive pulmonary disease [Unknown]
  - Drug intolerance [Unknown]

NARRATIVE: CASE EVENT DATE: 20230101
